FAERS Safety Report 23782251 (Version 1)
Quarter: 2024Q2

REPORT INFORMATION
  Report Type: Spontaneous
  Country: NL (occurrence: NL)
  Receive Date: 20240425
  Receipt Date: 20240425
  Transmission Date: 20240716
  Serious: Yes (Life-Threatening)
  Sender: FDA-Public Use
  Company Number: None

PATIENT
  Age: 5 Year
  Sex: Male
  Weight: 32.5 kg

DRUGS (6)
  1. CLONAZEPAM [Suspect]
     Active Substance: CLONAZEPAM
     Indication: Dystonia
     Dosage: 2 DROPS 3 TIMES A DAY, DROPS ?DAILY DOSE: 6 DROP
     Dates: start: 20210115
  2. CLONAZEPAM [Suspect]
     Active Substance: CLONAZEPAM
     Indication: Epilepsy
     Dosage: 2 DROPS 3 TIMES A DAY, DROPS ?DAILY DOSE: 6 DROP
     Dates: start: 20210115
  3. POLYETHYLENE GLYCOL 4000 [Concomitant]
     Active Substance: POLYETHYLENE GLYCOL 4000
     Dosage: POWDER FOR DRINK 13.8 GRAMS, SACHET
  4. DESLORATADINE [Concomitant]
     Active Substance: DESLORATADINE
     Dosage: SMELTTABLET, 2,5 MG (MILLIGRAM)
  5. CANNABIDIOL [Concomitant]
     Active Substance: CANNABIDIOL
     Dosage: DRANK, 100 MG/ML (MILLIGRAM PER MILLILITER)
  6. FLUTICASONE PROPIONATE [Concomitant]
     Active Substance: FLUTICASONE PROPIONATE
     Dosage: NEUSSPRAY, 50 ?G/DOSE

REACTIONS (7)
  - Salivary hypersecretion [Recovering/Resolving]
  - Increased bronchial secretion [Recovering/Resolving]
  - Pneumonia aspiration [Unknown]
  - Apathy [Not Recovered/Not Resolved]
  - Breath sounds [Not Recovered/Not Resolved]
  - Depressed mood [Not Recovered/Not Resolved]
  - Precocious puberty [Not Recovered/Not Resolved]
